FAERS Safety Report 5838882-9 (Version None)
Quarter: 2008Q3

REPORT INFORMATION
  Report Type: 
  Country: None (occurrence: None)
  Receive Date: 20080808
  Receipt Date: 20080701
  Transmission Date: 20090109
  Serious: Yes (Other)
  Sender: FDA-Public Use
  Company Number: US-JNJCH-2008020445

PATIENT
  Sex: Female

DRUGS (2)
  1. BENADRYL [Suspect]
     Indication: PROPHYLAXIS
     Dosage: TEXT:UNKNOWN
     Route: 042
  2. REMICADE [Suspect]
     Indication: RHEUMATOID ARTHRITIS
     Dosage: TEXT:UNKNOWN
     Route: 042

REACTIONS (3)
  - CHEST DISCOMFORT [None]
  - CHEST PAIN [None]
  - INJECTION SITE EXTRAVASATION [None]
